FAERS Safety Report 8509969-7 (Version None)
Quarter: 2012Q3

REPORT INFORMATION
  Report Type: 
  Country: None (occurrence: None)
  Receive Date: 20120713
  Receipt Date: 20120709
  Transmission Date: 20120928
  Serious: Yes (Hospitalization)
  Sender: FDA-Public Use
  Company Number: US-CELGENEUS-163-50794-12071000

PATIENT
  Age: 68 Year
  Sex: Male
  Weight: 93.433 kg

DRUGS (4)
  1. VIDAZA [Suspect]
  2. VIDAZA [Suspect]
     Dosage: 150 MILLIGRAM
     Route: 041
     Dates: start: 20120514
  3. RITUXAN [Suspect]
     Dosage: 750 MILLIGRAM
     Route: 041
     Dates: start: 20120622
  4. RITUXAN [Suspect]

REACTIONS (5)
  - PANCYTOPENIA [None]
  - COUGH [None]
  - DYSPNOEA [None]
  - MUSCULOSKELETAL PAIN [None]
  - FEBRILE NEUTROPENIA [None]
